FAERS Safety Report 20375044 (Version 19)
Quarter: 2023Q1

REPORT INFORMATION
  Report Type: Report from Study
  Country: CH (occurrence: None)
  Receive Date: 20220125
  Receipt Date: 20230210
  Transmission Date: 20230418
  Serious: Yes (Hospitalization)
  Sender: FDA-Public Use
  Company Number: CH-Eisai Medical Research-EC-2022-107259

PATIENT
  Age: 79 Year
  Sex: Male
  Weight: 80.1 kg

DRUGS (11)
  1. LENVATINIB [Suspect]
     Active Substance: LENVATINIB
     Indication: Hepatocellular carcinoma
     Route: 048
     Dates: start: 20211110, end: 20221201
  2. LENVATINIB [Suspect]
     Active Substance: LENVATINIB
     Dosage: STARTING AT 8 MG, FLUCTUATED DOSAGE
     Route: 048
     Dates: start: 20211202, end: 20220223
  3. PEMBROLIZUMAB [Suspect]
     Active Substance: PEMBROLIZUMAB
     Indication: Hepatocellular carcinoma
     Dosage: 25 MG OF QUAVONLIMAB + 400 MG OF PEMBROLIZUMAB
     Route: 041
     Dates: start: 20211110, end: 20211110
  4. QUAVONLIMAB [Suspect]
     Active Substance: QUAVONLIMAB
     Dosage: 25 MG OF QUAVONLIMAB + 400 MG OF PEMBROLIZUMAB
     Route: 041
     Dates: start: 20211223, end: 20220218
  5. EMPAGLIFLOZIN\METFORMIN HYDROCHLORIDE [Concomitant]
     Active Substance: EMPAGLIFLOZIN\METFORMIN HYDROCHLORIDE
     Dates: start: 2010
  6. ASPIRIN [Concomitant]
     Active Substance: ASPIRIN
     Dates: start: 2015
  7. ESOMEPRAZOLE [Concomitant]
     Active Substance: ESOMEPRAZOLE
     Dates: start: 2017
  8. ROSUVASTATIN [Concomitant]
     Active Substance: ROSUVASTATIN
     Dates: start: 2019
  9. LISINOPRIL [Concomitant]
     Active Substance: LISINOPRIL
     Dates: start: 2015, end: 20211125
  10. GLYCERIN\MINERAL OIL\PETROLATUM [Concomitant]
     Active Substance: GLYCERIN\MINERAL OIL\PETROLATUM
     Dates: start: 20220116
  11. MODERNA COVID-19 VACCINE [Concomitant]
     Active Substance: ELASOMERAN
     Dates: start: 20211117

REACTIONS (1)
  - Weight decreased [Recovered/Resolved]

NARRATIVE: CASE EVENT DATE: 20211125
